FAERS Safety Report 7306504-6 (Version None)
Quarter: 2011Q1

REPORT INFORMATION
  Report Type: 
  Country: None (occurrence: None)
  Receive Date: 20110222
  Receipt Date: 20110214
  Transmission Date: 20110831
  Serious: Yes (Other)
  Sender: FDA-Public Use
  Company Number: HR-TEVA-267380ISR

PATIENT
  Age: 65 Year
  Sex: Female

DRUGS (4)
  1. NEBIVOLOL [Concomitant]
     Route: 048
  2. ATORVASTATIN [Suspect]
     Route: 048
     Dates: start: 20090101, end: 20090501
  3. BISOPROLOL FUMARATE [Concomitant]
     Route: 048
  4. SIMVASTATIN [Suspect]
     Indication: LIGAMENT INJURY
     Route: 048
     Dates: start: 20080101, end: 20090101

REACTIONS (3)
  - SUFFOCATION FEELING [None]
  - COUGH [None]
  - PALPITATIONS [None]
